FAERS Safety Report 21622211 (Version 1)
Quarter: 2022Q4

REPORT INFORMATION
  Report Type: Other
  Country: US (occurrence: None)
  Receive Date: 20221121
  Receipt Date: 20221121
  Transmission Date: 20230113
  Serious: No
  Sender: FDA-Public Use
  Company Number: US-ROCHE-3220574

PATIENT
  Age: 35 Year
  Sex: Female
  Weight: 124.85 kg

DRUGS (11)
  1. OCREVUS [Suspect]
     Active Substance: OCRELIZUMAB
     Indication: Relapsing-remitting multiple sclerosis
     Route: 042
     Dates: start: 20191008
  2. CLONIDINE [Concomitant]
     Active Substance: CLONIDINE
  3. CORLANOR [Concomitant]
     Active Substance: IVABRADINE HYDROCHLORIDE
  4. MELATONIN [Concomitant]
     Active Substance: MELATONIN
  5. LYRICA [Concomitant]
     Active Substance: PREGABALIN
  6. SEROQUEL [Concomitant]
     Active Substance: QUETIAPINE FUMARATE
  7. HYDROXYZINE [Concomitant]
     Active Substance: HYDROXYZINE HYDROCHLORIDE
  8. ZOFRAN [Concomitant]
     Active Substance: ONDANSETRON HYDROCHLORIDE
  9. VENLAFAXINE [Concomitant]
     Active Substance: VENLAFAXINE HYDROCHLORIDE
  10. BUSPAR [Concomitant]
     Active Substance: BUSPIRONE HYDROCHLORIDE
  11. MECLIZINE [Concomitant]
     Active Substance: MECLIZINE HYDROCHLORIDE

REACTIONS (3)
  - COVID-19 [Recovering/Resolving]
  - Vertigo positional [Recovered/Resolved]
  - Vaccination failure [Not Recovered/Not Resolved]

NARRATIVE: CASE EVENT DATE: 20221009
